APPROVED DRUG PRODUCT: METHYLPHENIDATE HYDROCHLORIDE
Active Ingredient: METHYLPHENIDATE HYDROCHLORIDE
Strength: 10MG
Dosage Form/Route: TABLET, EXTENDED RELEASE;ORAL
Application: A210992 | Product #001 | TE Code: AB
Applicant: GRANULES PHARMACEUTICALS INC
Approved: Nov 21, 2018 | RLD: No | RS: No | Type: RX